FAERS Safety Report 12156557 (Version 1)
Quarter: 2016Q1

REPORT INFORMATION
  Report Type: Spontaneous
  Country: DE (occurrence: DE)
  Receive Date: 20160307
  Receipt Date: 20160307
  Transmission Date: 20160526
  Serious: Yes (Hospitalization, Disabling)
  Sender: FDA-Public Use
  Company Number: DE-TORRENT-00004520

PATIENT
  Age: 84 Year
  Sex: Male
  Weight: 89 kg

DRUGS (2)
  1. IBUPROFEN. [Concomitant]
     Active Substance: IBUPROFEN
     Indication: PRODUCT USED FOR UNKNOWN INDICATION
  2. METFORMIN HEUMANN [Suspect]
     Active Substance: METFORMIN HYDROCHLORIDE
     Indication: TYPE 2 DIABETES MELLITUS
     Dosage: 3 X 1000 MG
     Route: 048
     Dates: start: 20151012, end: 20151102

REACTIONS (7)
  - Lactic acidosis [Recovering/Resolving]
  - Sepsis [None]
  - Hyperkalaemia [Recovering/Resolving]
  - Staphylococcal infection [None]
  - Haemodialysis [None]
  - Renal impairment [Recovering/Resolving]
  - Wound [None]

NARRATIVE: CASE EVENT DATE: 20151102
